FAERS Safety Report 4481249-9 (Version None)
Quarter: 2004Q4

REPORT INFORMATION
  Report Type: 
  Country: None (occurrence: None)
  Receive Date: 20040923
  Receipt Date: 20040701
  Transmission Date: 20050328
  Serious: No
  Sender: FDA-Public Use
  Company Number: USA030330846

PATIENT
  Age: 84 Year
  Sex: Female
  Weight: 52 kg

DRUGS (9)
  1. FORTEO [Suspect]
     Indication: OSTEOPOROSIS
     Dosage: 20 UG/L DAY
     Dates: start: 20030120
  2. EVISTA [Suspect]
     Indication: OSTEOPOROSIS
     Dates: start: 20010601, end: 20010901
  3. VIOXX [Concomitant]
  4. SYNTHROID [Concomitant]
  5. VITAMIN [Concomitant]
  6. CALCIUM [Concomitant]
  7. PRINIVIL [Concomitant]
  8. CITRACAL (CALCIUM CITRATE) [Concomitant]
  9. ARICEPT [Concomitant]

REACTIONS (14)
  - EAR PAIN [None]
  - HEADACHE [None]
  - INJECTION SITE DISCOLOURATION [None]
  - INJECTION SITE ERYTHEMA [None]
  - INJECTION SITE PAIN [None]
  - INJECTION SITE SWELLING [None]
  - LIMB INJURY [None]
  - MYALGIA [None]
  - NAUSEA [None]
  - PAIN [None]
  - RASH [None]
  - RASH PRURITIC [None]
  - VERTIGO [None]
  - VOMITING [None]
